FAERS Safety Report 25387682 (Version 2)
Quarter: 2025Q2

REPORT INFORMATION
  Report Type: Spontaneous
  Country: EG (occurrence: EG)
  Receive Date: 20250603
  Receipt Date: 20250612
  Transmission Date: 20250716
  Serious: Yes (Hospitalization, Other)
  Sender: NOVO NORDISK
  Company Number: EG-NOVOPROD-1432485

PATIENT
  Age: 16 Year
  Sex: Male
  Weight: 71 kg

DRUGS (2)
  1. NOVORAPID [Suspect]
     Active Substance: INSULIN ASPART
     Dosage: 64 IU, QD(23IU+23IU+18IU )
  2. NOVORAPID [Suspect]
     Active Substance: INSULIN ASPART
     Indication: Type 1 diabetes mellitus
     Dosage: 61 IU, QD(18IU+20IU+23IU )

REACTIONS (5)
  - Hyperglycaemic unconsciousness [Recovered/Resolved]
  - Product storage error [Unknown]
  - Product administration error [Unknown]
  - Abscess limb [Unknown]
  - Drug ineffective [Unknown]

NARRATIVE: CASE EVENT DATE: 20250430
